FAERS Safety Report 22125743 (Version 4)
Quarter: 2024Q4

REPORT INFORMATION
  Report Type: Spontaneous
  Country: US (occurrence: US)
  Receive Date: 20230322
  Receipt Date: 20241113
  Transmission Date: 20250115
  Serious: No
  Sender: PFIZER
  Company Number: US-PFIZER INC-PV202300053289

PATIENT
  Age: 92 Year
  Sex: Female

DRUGS (1)
  1. IBRANCE [Suspect]
     Active Substance: PALBOCICLIB
     Dosage: 75 MG, ONE PILL DAILY FOR 21 DAYS WITH 7 DAYS OFF TREATMENT EVERY 28 DAYS
     Route: 048

REACTIONS (2)
  - Hypoacusis [Unknown]
  - Dermatitis acneiform [Unknown]
